FAERS Safety Report 19477776 (Version 1)
Quarter: 2021Q2

REPORT INFORMATION
  Report Type: Spontaneous
  Country: US (occurrence: US)
  Receive Date: 20210630
  Receipt Date: 20210630
  Transmission Date: 20210717
  Serious: No
  Sender: FDA-Public Use
  Company Number: US-KRAMERLABS-2021-US-003290

PATIENT
  Sex: Male

DRUGS (1)
  1. NIZORAL A?D [Suspect]
     Active Substance: KETOCONAZOLE
     Indication: DANDRUFF
     Dosage: EVERY 2?3 DAYS FOR ABOUT TWO WEEKS
     Route: 061
     Dates: start: 2019, end: 2019

REACTIONS (3)
  - Inappropriate schedule of product administration [Recovered/Resolved]
  - Intentional product misuse [Recovered/Resolved]
  - Alopecia [Recovered/Resolved]

NARRATIVE: CASE EVENT DATE: 2019
